FAERS Safety Report 6484986-X (Version None)
Quarter: 2009Q4

REPORT INFORMATION
  Report Type: 
  Country: None (occurrence: None)
  Receive Date: 20091203
  Receipt Date: 20091127
  Transmission Date: 20100525
  Serious: Yes (Other)
  Sender: FDA-Public Use
  Company Number: SPV1-2009-02188

PATIENT
  Age: 50 Year

DRUGS (11)
  1. FOSRENOL [Suspect]
     Dosage: ORAL
     Route: 048
     Dates: start: 20090828, end: 20090904
  2. EBASTINE [Concomitant]
  3. ASPIRIN [Concomitant]
  4. CINACALCET HYDROCHLORIDE (CINACALCET HYDROCHLORIDE) [Concomitant]
  5. LIPOVAS /00499301/ (FENOFIBRATE) [Concomitant]
  6. PLETAL [Concomitant]
  7. ISOSORBIDE MONONITRATE [Concomitant]
  8. CALCIUM CARBONATE [Concomitant]
  9. PHOSBLOCK (SEVELAMER HYDROCHLORIDE) [Concomitant]
  10. NORVASC [Concomitant]
  11. LAXOBERON (SODIUM PICOSULFATE) [Concomitant]

REACTIONS (4)
  - BLISTER [None]
  - DRUG ERUPTION [None]
  - RASH GENERALISED [None]
  - TOXIC SKIN ERUPTION [None]
